FAERS Safety Report 7414978-5 (Version None)
Quarter: 2011Q2

REPORT INFORMATION
  Report Type: 
  Country: None (occurrence: None)
  Receive Date: 20110405
  Receipt Date: 20110324
  Transmission Date: 20111010
  Serious: Yes (Hospitalization)
  Sender: FDA-Public Use
  Company Number: 2011-0909

PATIENT
  Age: 56 Year
  Sex: Female
  Weight: 140 kg

DRUGS (6)
  1. LIPODERM (ANAESTHETICS FOR TOPICAL USE) [Suspect]
     Indication: PREMEDICATION
     Dosage: TOPICAL
     Route: 061
     Dates: start: 20110322, end: 20110322
  2. RESTYLANE (HYALURONIC ACID) [Concomitant]
  3. DIOVAN [Concomitant]
  4. DYSPORT [Suspect]
     Indication: PRODUCT USED FOR UNKNOWN INDICATION
     Dosage: 180 UNITS (180 UNITS,SINGLE CYCLE)
     Dates: start: 20110322, end: 20110322
  5. DYSPORT [Suspect]
     Indication: SKIN WRINKLING
     Dosage: 180 UNITS (180 UNITS,SINGLE CYCLE)
     Dates: start: 20110322, end: 20110322
  6. DYSPORT [Suspect]
     Indication: SKIN COSMETIC PROCEDURE
     Dosage: 180 UNITS (180 UNITS,SINGLE CYCLE)
     Dates: start: 20110322, end: 20110322

REACTIONS (5)
  - ANTEROGRADE AMNESIA [None]
  - RETROGRADE AMNESIA [None]
  - HEADACHE [None]
  - CONFUSIONAL STATE [None]
  - WRONG TECHNIQUE IN DRUG USAGE PROCESS [None]
